FAERS Safety Report 6024363-9 (Version None)
Quarter: 2008Q4

REPORT INFORMATION
  Report Type: 
  Country: None (occurrence: None)
  Receive Date: 20081231
  Receipt Date: 20081219
  Transmission Date: 20090506
  Serious: Yes (Death, Hospitalization)
  Sender: FDA-Public Use
  Company Number: PFIZER INC-2008009336

PATIENT
  Sex: Female
  Weight: 51.71 kg

DRUGS (6)
  1. SUNITINIB MALATE [Suspect]
     Indication: HEAD AND NECK CANCER
     Dosage: 37.5 MG, DAY
     Route: 048
     Dates: start: 20071121, end: 20071226
  2. NEURONTIN [Concomitant]
     Route: 048
     Dates: start: 20071001
  3. OXYCODONE [Concomitant]
     Dosage: 15 MG, Q 4 HRS, AS NEEDED
     Route: 048
  4. PREDNISONE [Concomitant]
     Dosage: DAILY
  5. PRILOSEC [Concomitant]
  6. NEXIUM [Concomitant]

REACTIONS (2)
  - DEHYDRATION [None]
  - PNEUMONIA NECROTISING [None]
